FAERS Safety Report 12520954 (Version 1)
Quarter: 2016Q2

REPORT INFORMATION
  Report Type: Spontaneous
  Country: US (occurrence: None)
  Receive Date: 20160630
  Receipt Date: 20160630
  Transmission Date: 20160815
  Serious: Yes (Other)
  Sender: FDA-Public Use
  Company Number: None

PATIENT
  Age: 52 Year
  Sex: Female
  Weight: 59.42 kg

DRUGS (5)
  1. LEVOTHIROID [Concomitant]
  2. NAC [Concomitant]
  3. BIOTIN [Concomitant]
     Active Substance: BIOTIN
  4. ZYPREXA [Suspect]
     Active Substance: OLANZAPINE
     Indication: BIPOLAR DISORDER
     Route: 048
     Dates: start: 20070713
  5. METFORMIN [Concomitant]
     Active Substance: METFORMIN HYDROCHLORIDE

REACTIONS (3)
  - Protrusion tongue [None]
  - Tooth disorder [None]
  - Dystonia [None]

NARRATIVE: CASE EVENT DATE: 20160620
